FAERS Safety Report 22087577 (Version 1)
Quarter: 2023Q1

REPORT INFORMATION
  Report Type: Report from Study
  Country: US (occurrence: US)
  Receive Date: 20230313
  Receipt Date: 20230313
  Transmission Date: 20230418
  Serious: Yes (Hospitalization, Other)
  Sender: FDA-Public Use
  Company Number: US-ABBVIE-4269903

PATIENT
  Age: 78 Year
  Sex: Male
  Weight: 74.842 kg

DRUGS (2)
  1. HUMIRA [Suspect]
     Active Substance: ADALIMUMAB
     Indication: Psoriasis
     Route: 058
     Dates: start: 20200817, end: 202207
  2. HUMIRA [Suspect]
     Active Substance: ADALIMUMAB
     Route: 058
     Dates: start: 202209, end: 202209

REACTIONS (7)
  - Pneumonia bacterial [Recovered/Resolved]
  - Haemoptysis [Recovered/Resolved]
  - Depression [Not Recovered/Not Resolved]
  - Drug specific antibody present [Unknown]
  - Psoriasis [Unknown]
  - Medical induction of coma [Recovered/Resolved]
  - Paralysis [Unknown]

NARRATIVE: CASE EVENT DATE: 20220301
